FAERS Safety Report 4872916-3 (Version None)
Quarter: 2006Q1

REPORT INFORMATION
  Report Type: 
  Country: None (occurrence: None)
  Receive Date: 20060105
  Receipt Date: 20050118
  Transmission Date: 20060701
  Serious: Yes (Hospitalization)
  Sender: FDA-Public Use
  Company Number: US-BRISTOL-MYERS SQUIBB COMPANY-12834727

PATIENT
  Age: 47 Year
  Sex: Female

DRUGS (4)
  1. SERZONE [Suspect]
     Indication: FIBROMYALGIA
     Route: 048
     Dates: start: 20010627, end: 20020325
  2. NEXIUM [Concomitant]
  3. TENORMIN [Concomitant]
  4. LEVSIN [Concomitant]

REACTIONS (2)
  - ABDOMINAL PAIN [None]
  - LIVER FUNCTION TEST ABNORMAL [None]
